FAERS Safety Report 6337557-X (Version None)
Quarter: 2009Q3

REPORT INFORMATION
  Report Type: 
  Country: None (occurrence: None)
  Receive Date: 20090901
  Receipt Date: 20090901
  Transmission Date: 20100115
  Serious: Yes (Other)
  Sender: FDA-Public Use
  Company Number: None

PATIENT
  Age: 21 Year
  Sex: Male
  Weight: 74.8435 kg

DRUGS (3)
  1. ABILIFY [Suspect]
     Indication: AFFECTIVE DISORDER
     Dosage: 20 MG QD PO
     Route: 048
     Dates: start: 20030410, end: 20090618
  2. ABILIFY [Suspect]
     Indication: AGORAPHOBIA
     Dosage: 20 MG QD PO
     Route: 048
     Dates: start: 20030410, end: 20090618
  3. ABILIFY [Suspect]
     Indication: ANXIETY
     Dosage: 20 MG QD PO
     Route: 048
     Dates: start: 20030410, end: 20090618

REACTIONS (1)
  - TACHYCARDIA [None]
